FAERS Safety Report 4929338-6 (Version None)
Quarter: 2006Q1

REPORT INFORMATION
  Report Type: 
  Country: None (occurrence: None)
  Receive Date: 20060301
  Receipt Date: 20060216
  Transmission Date: 20060701
  Serious: Yes (Hospitalization)
  Sender: FDA-Public Use
  Company Number: FR-AVENTIS-200610649FR

PATIENT
  Age: 91 Year
  Sex: Female
  Weight: 88 kg

DRUGS (6)
  1. KETEK [Suspect]
     Indication: SUPERINFECTION
     Route: 048
     Dates: start: 20050520, end: 20050524
  2. LASILIX [Suspect]
     Dates: start: 20020615, end: 20050523
  3. ALDACTONE [Concomitant]
     Dates: start: 20020615, end: 20050523
  4. COZAAR [Concomitant]
     Dates: start: 20020615, end: 20050524
  5. OMEPRAZOLE [Concomitant]
     Dates: start: 20000615, end: 20050524
  6. LEVOTHYROX [Concomitant]
     Route: 048
     Dates: start: 20000101

REACTIONS (2)
  - BLOOD CREATININE INCREASED [None]
  - RENAL FAILURE ACUTE [None]
